FAERS Safety Report 9457693 (Version 3)
Quarter: 2014Q2

REPORT INFORMATION
  Report Type: Spontaneous
  Country: US (occurrence: None)
  Receive Date: 20130809
  Receipt Date: 20140110
  Transmission Date: 20141212
  Serious: Yes (Other)
  Sender: FDA-Public Use
  Company Number: KAD201308-000956

PATIENT
  Age: 58 Year
  Sex: Female
  Weight: 77.09 kg

DRUGS (3)
  1. RIBASPHERE RIBAPAK (RIBAVIRIN) [Suspect]
     Indication: HEPATITIS C
     Dosage: 3 TABLETS EACH IN AM AND PM
     Route: 048
     Dates: start: 20130629
  2. PEGASYS (PEGINTERFERON ALFA-2A) [Suspect]
     Dates: start: 20130628
  3. INCIVEK (TELAPREVIR) [Suspect]
     Dates: start: 20130629

REACTIONS (7)
  - Rash [None]
  - Immune system disorder [None]
  - Full blood count decreased [None]
  - Hepatic enzyme increased [None]
  - Anaemia [None]
  - Rash pustular [None]
  - Scar [None]
